FAERS Safety Report 5132365-X (Version None)
Quarter: 2006Q4

REPORT INFORMATION
  Report Type: 
  Country: None (occurrence: None)
  Receive Date: 20061019
  Receipt Date: 20061019
  Transmission Date: 20070319
  Serious: Yes (Other)
  Sender: FDA-Public Use
  Company Number: None

PATIENT
  Age: 57 Year
  Sex: Female

DRUGS (1)
  1. HALOPERIDOL [Suspect]
     Indication: PSYCHOTIC DISORDER
     Dosage: HALOPERIDOL 1 MG PO BID
     Route: 048
     Dates: start: 20060920, end: 20060924

REACTIONS (3)
  - DROOLING [None]
  - DRUG EFFECT DECREASED [None]
  - TREMOR [None]
